FAERS Safety Report 25517893 (Version 1)
Quarter: 2025Q3

REPORT INFORMATION
  Report Type: Spontaneous
  Country: GB (occurrence: GB)
  Receive Date: 20250704
  Receipt Date: 20250704
  Transmission Date: 20251021
  Serious: Yes (Disabling, Other)
  Sender: ASTELLAS
  Company Number: None

PATIENT
  Age: 49 Year

DRUGS (2)
  1. MIRABEGRON [Suspect]
     Active Substance: MIRABEGRON
     Indication: Hypertonic bladder
     Route: 065
     Dates: start: 20250509, end: 20250510
  2. SERTRALINE [Concomitant]
     Active Substance: SERTRALINE HYDROCHLORIDE
     Indication: Depression
     Route: 050

REACTIONS (6)
  - Hyperhidrosis [Recovered/Resolved]
  - Illness [Recovered/Resolved]
  - Abdominal pain upper [Recovered/Resolved]
  - Dizziness [Recovered/Resolved]
  - Malaise [Recovered/Resolved]
  - Bedridden [Recovered/Resolved]

NARRATIVE: CASE EVENT DATE: 20250510
